FAERS Safety Report 6456611-5 (Version None)
Quarter: 2009Q4

REPORT INFORMATION
  Report Type: 
  Country: None (occurrence: None)
  Receive Date: 20091125
  Receipt Date: 20091116
  Transmission Date: 20100525
  Serious: Yes (Other)
  Sender: FDA-Public Use
  Company Number: US-BAYER-200916752BCC

PATIENT
  Age: 72 Year
  Sex: Male
  Weight: 77 kg

DRUGS (6)
  1. ASPIRIN [Suspect]
     Indication: DRUG USE FOR UNKNOWN INDICATION
     Dosage: TOTAL DAILY DOSE: 81 MG  UNIT DOSE: 81 MG
     Route: 048
     Dates: start: 20090601
  2. CLOPIDOGREL [Suspect]
     Indication: STENT PLACEMENT
     Dosage: TOTAL DAILY DOSE: 75 MG  UNIT DOSE: 75 MG
     Route: 048
     Dates: start: 20090601
  3. CLOPIDOGREL [Suspect]
     Dosage: TOTAL DAILY DOSE: 150 MG  UNIT DOSE: 75 MG
     Route: 048
     Dates: start: 20090401
  4. LIPITOR [Concomitant]
     Route: 065
  5. SYNTHROID [Concomitant]
     Route: 065
  6. COZAAR [Concomitant]
     Route: 065

REACTIONS (15)
  - ARTHRALGIA [None]
  - BALANCE DISORDER [None]
  - BONE PAIN [None]
  - EPISTAXIS [None]
  - EYE DISORDER [None]
  - FATIGUE [None]
  - GAIT DISTURBANCE [None]
  - GOUT [None]
  - HYALOSIS ASTEROID [None]
  - LOSS OF CONSCIOUSNESS [None]
  - NASAL DISCOMFORT [None]
  - NIGHT BLINDNESS [None]
  - VISION BLURRED [None]
  - VISUAL ACUITY REDUCED [None]
  - VISUAL IMPAIRMENT [None]
